FAERS Safety Report 7474882-3 (Version None)
Quarter: 2011Q2

REPORT INFORMATION
  Report Type: 
  Country: None (occurrence: None)
  Receive Date: 20110512
  Receipt Date: 20110413
  Transmission Date: 20111010
  Serious: Yes (Hospitalization, Other)
  Sender: FDA-Public Use
  Company Number: US-BAYER-2010-009222

PATIENT
  Age: 33 Year
  Sex: Female
  Weight: 68.934 kg

DRUGS (5)
  1. MULTI-VITAMIN [Concomitant]
  2. MOTRIN [Concomitant]
  3. ALUMINIUM CHLORIDE [Concomitant]
  4. YAZ [Suspect]
     Indication: ACNE
     Dosage: UNK
     Dates: start: 20080101
  5. HYDROXYCUT [Concomitant]

REACTIONS (6)
  - PULMONARY INFARCTION [None]
  - INJURY [None]
  - PAIN [None]
  - DYSPNOEA [None]
  - PULMONARY EMBOLISM [None]
  - CHEST PAIN [None]
